FAERS Safety Report 12053273 (Version 1)
Quarter: 2016Q1

REPORT INFORMATION
  Report Type: Spontaneous
  Country: US (occurrence: US)
  Receive Date: 20160209
  Receipt Date: 20160209
  Transmission Date: 20160526
  Serious: No
  Sender: FDA-Public Use
  Company Number: US-ENDO PHARMACEUTICALS INC.-2015-000423

PATIENT
  Age: 37 Year
  Sex: Male
  Weight: 82.63 kg

DRUGS (1)
  1. FORTESTA [Suspect]
     Active Substance: TESTOSTERONE
     Indication: ERECTILE DYSFUNCTION
     Route: 061
     Dates: start: 20150406, end: 20150415

REACTIONS (7)
  - Application site rash [Recovered/Resolved]
  - Application site erythema [Recovered/Resolved]
  - Drug ineffective [Not Recovered/Not Resolved]
  - Application site dryness [Not Recovered/Not Resolved]
  - Application site exfoliation [Recovered/Resolved]
  - Application site paraesthesia [Recovered/Resolved]
  - Application site pain [Recovered/Resolved]

NARRATIVE: CASE EVENT DATE: 201504
